FAERS Safety Report 4583177-7 (Version None)
Quarter: 2005Q1

REPORT INFORMATION
  Report Type: 
  Country: None (occurrence: None)
  Receive Date: 20050125
  Receipt Date: 20040908
  Transmission Date: 20050727
  Serious: No
  Sender: FDA-Public Use
  Company Number: US_011176748

PATIENT
  Age: 51 Year
  Sex: Female

DRUGS (11)
  1. FORTEO [Suspect]
     Dates: start: 20040501
  2. HUMALOG [Suspect]
     Indication: DIABETES MELLITUS
     Dates: start: 20040101
  3. LANTUS [Concomitant]
  4. HUMULIN R [Suspect]
     Indication: DIABETES MELLITUS
  5. HUMULIN N [Suspect]
     Indication: DIABETES MELLITUS
  6. LANTUS [Concomitant]
  7. BETASERON [Concomitant]
  8. ACTONEL [Concomitant]
  9. LEVOXYL [Concomitant]
  10. ZESTRIL [Concomitant]
  11. FOLIC ACID [Concomitant]

REACTIONS (7)
  - ABASIA [None]
  - BALANCE DISORDER [None]
  - DIFFICULTY IN WALKING [None]
  - FALL [None]
  - MULTIPLE SCLEROSIS [None]
  - OSTEOPOROSIS [None]
  - RENAL IMPAIRMENT [None]
